FAERS Safety Report 18327824 (Version 1)
Quarter: 2020Q3

REPORT INFORMATION
  Report Type: Spontaneous
  Country: NL (occurrence: NL)
  Receive Date: 20200930
  Receipt Date: 20200930
  Transmission Date: 20201103
  Serious: Yes (Life-Threatening, Hospitalization, Other)
  Sender: FDA-Public Use
  Company Number: NL-TEVA-105460ISR

PATIENT
  Age: 49 Year
  Sex: Male

DRUGS (8)
  1. FLUDROCORTISONE ACETATE TABLETS, 62.5 MG [Interacting]
     Active Substance: FLUDROCORTISONE ACETATE
     Indication: ADRENAL DISORDER
     Dosage: 62.5 MICROGRAM DAILY;
  2. OMEPRAZOLE MAGNESIUM. [Concomitant]
     Active Substance: OMEPRAZOLE MAGNESIUM
     Dosage: 40 MILLIGRAM DAILY;
  3. ALENDRONATE SODIUM. [Concomitant]
     Active Substance: ALENDRONATE SODIUM
     Dosage: UNIT DOSE : 70 MILLIGRAM
  4. FLUTICASONE PROPIONATE. [Concomitant]
     Active Substance: FLUTICASONE PROPIONATE
     Dosage: UNIT DOSE : 250 MICROGRAM, AS NEEDED
  5. HYDROCORTISONE. [Concomitant]
     Active Substance: HYDROCORTISONE
  6. OXAZEPAM. [Concomitant]
     Active Substance: OXAZEPAM
     Dosage: UNIT DOSE : 10 MILLIGRAM, AS NEEDED
  7. QUINAPRIL. [Suspect]
     Active Substance: QUINAPRIL
     Indication: ESSENTIAL HYPERTENSION
     Dosage: UNIT DOSE : 20 MILLIGRAM
     Dates: start: 20040421, end: 20041025
  8. MAGNESIUM HYDROXIDE. [Concomitant]
     Active Substance: MAGNESIUM HYDROXIDE
     Dosage: UNIT DOSE : 724 MILLIGRAM

REACTIONS (3)
  - Drug interaction [Unknown]
  - Pneumonia [Unknown]
  - Adrenocortical insufficiency acute [Unknown]

NARRATIVE: CASE EVENT DATE: 20040520
